FAERS Safety Report 8771566 (Version 1)
Quarter: 2012Q4

REPORT INFORMATION
  Report Type: 
  Country: JP (occurrence: JP)
  Receive Date: 20120905
  Receipt Date: 20120905
  Transmission Date: 20130627
  Serious: Yes (Other)
  Sender: FDA-Public Use
  Company Number: JP-ROCHE-1114525

PATIENT
  Age: 56 Year
  Sex: Male

DRUGS (5)
  1. RITUXIMAB [Suspect]
     Indication: LYMPHOMA
     Dosage: indication: malignant lymphoma of the duodenum
     Route: 065
     Dates: start: 20100626
  2. CYCLOPHOSPHAMIDE [Concomitant]
     Indication: LYMPHOMA
     Dosage: indication: malignant lymphoma of the duodenum
     Route: 065
     Dates: start: 20100626
  3. DOXORUBICIN HYDROCHLORIDE [Concomitant]
     Indication: LYMPHOMA
     Dosage: indication: malignant lymphoma of the duodenum
     Route: 065
     Dates: start: 20100626
  4. VINCRISTINE SULFATE [Concomitant]
     Indication: LYMPHOMA
     Dosage: indication: malignant lymphoma of the duodenum
     Route: 065
     Dates: start: 20100626
  5. PREDNISOLONE [Concomitant]
     Indication: LYMPHOMA
     Dosage: indication: malignant lymphoma of the duodenum
     Route: 065
     Dates: start: 20100626

REACTIONS (1)
  - Gastrointestinal stenosis [Unknown]
